FAERS Safety Report 23149741 (Version 2)
Quarter: 2023Q4

REPORT INFORMATION
  Report Type: Spontaneous
  Country: SE (occurrence: SE)
  Receive Date: 20231106
  Receipt Date: 20231129
  Transmission Date: 20240110
  Serious: Yes (Death)
  Sender: FDA-Public Use
  Company Number: None

PATIENT
  Age: 32 Year
  Sex: Female
  Weight: 71 kg

DRUGS (12)
  1. ALPRAZOLAM [Suspect]
     Active Substance: ALPRAZOLAM
     Indication: Product used for unknown indication
     Dosage: 50 DOSAGE FORM (50 TABLETS XANOR (ALPRAZOLAM) OF 2 MG)
     Route: 065
     Dates: start: 20220709, end: 20220710
  2. TOUJEO [Suspect]
     Active Substance: INSULIN GLARGINE
     Indication: Product used for unknown indication
     Dosage: 2 PLUS 2 PREFILLED SYRINGES, TOUEJO 300E/ML
     Route: 058
     Dates: start: 20220709, end: 20220710
  3. MELATONIN [Concomitant]
     Active Substance: MELATONIN
     Dosage: 2 MILLIGRAM, PRN (1 AT NIGHT WHEN NEEDED)
     Route: 048
     Dates: start: 20220110, end: 20220712
  4. LATUDA [Concomitant]
     Active Substance: LURASIDONE HYDROCHLORIDE
     Dosage: 37 MILLIGRAM, QD (2 X 1)
     Route: 048
     Dates: start: 20220609, end: 20220712
  5. BUPRENORPHINE [Concomitant]
     Active Substance: BUPRENORPHINE
     Dosage: 32 MILLIGRAM, QW (1 INJECTION ONCE A WEEK)
     Route: 058
     Dates: start: 20220119, end: 20220712
  6. BUPRENORPHINE [Concomitant]
     Active Substance: BUPRENORPHINE
     Dosage: 8 MILLIGRAM, QD
     Route: 065
     Dates: start: 20220708, end: 20220708
  7. BRINTELLIX [Concomitant]
     Active Substance: VORTIOXETINE HYDROBROMIDE
     Dosage: 10 MILLIGRAM, QD (1 X 1)
     Route: 048
     Dates: start: 20220110, end: 20220710
  8. ZOPICLONE ORION [Concomitant]
     Dosage: 7.5 MILLIGRAM, PRN (1 AT NIGHT VB)
     Route: 048
     Dates: start: 20220524, end: 20220710
  9. Propiomazin orifarm [Concomitant]
     Dosage: 50 MILLIGRAM, QD (2 AT NIGHT)
     Route: 048
     Dates: start: 20220110, end: 20220710
  10. HYDROCORTISONE\MICONAZOLE NITRATE [Concomitant]
     Active Substance: HYDROCORTISONE\MICONAZOLE NITRATE
     Dosage: UNK UNK, BID (2 APPLICATIONS DAILY)
     Route: 061
     Dates: start: 20230607, end: 20230710
  11. OLANZAPINE [Concomitant]
     Active Substance: OLANZAPINE
     Dosage: 5 MILLIGRAM, PRN
     Route: 048
     Dates: start: 20220609, end: 20220712
  12. OLANZAPINE [Concomitant]
     Active Substance: OLANZAPINE
     Dosage: 5 MILLIGRAM, QD
     Route: 048
     Dates: start: 20220609, end: 20220712

REACTIONS (7)
  - Toxicity to various agents [Fatal]
  - Hypoglycaemia [Fatal]
  - Brain injury [Fatal]
  - Pneumonia aspiration [Fatal]
  - Completed suicide [Fatal]
  - Prescription drug used without a prescription [Fatal]
  - Overdose [Unknown]

NARRATIVE: CASE EVENT DATE: 20220710
